FAERS Safety Report 14005112 (Version 1)
Quarter: 2017Q3

REPORT INFORMATION
  Report Type: Spontaneous
  Country: NL (occurrence: NL)
  Receive Date: 20170922
  Receipt Date: 20170922
  Transmission Date: 20171128
  Serious: Yes (Other)
  Sender: FDA-Public Use
  Company Number: NL-TEVA-807982ROM

PATIENT
  Age: 7 Decade
  Sex: Male

DRUGS (1)
  1. SALBUTAMOL MYLAN 100 CFK-VRIJE INHALATOR, A?ROSOL, SUSPENSIE, 100 MICR [Suspect]
     Active Substance: ALBUTEROL
     Indication: PRODUCT USED FOR UNKNOWN INDICATION
     Dosage: 200 MICROGRAM DAILY;

REACTIONS (3)
  - Hallucination [Unknown]
  - Psychotic disorder [Unknown]
  - Delusion [Unknown]
